FAERS Safety Report 6603302-3 (Version None)
Quarter: 2010Q1

REPORT INFORMATION
  Report Type: 
  Country: None (occurrence: None)
  Receive Date: 20100218
  Receipt Date: 20100209
  Transmission Date: 20100710
  Serious: Yes (Hospitalization, Congenital Anomaly)
  Sender: FDA-Public Use
  Company Number: DSA_42597_2010

PATIENT
  Age: 22 Month
  Sex: Female

DRUGS (1)
  1. DICLOFENAC (DICLOFENACK) [Suspect]
     Indication: ABDOMINAL PAIN
     Dosage: (75 MG QD TRANSPLACENTAL)
     Route: 064

REACTIONS (6)
  - ANAL STENOSIS [None]
  - APLASIA CUTIS CONGENITA [None]
  - CONGENITAL FLOPPY INFANT [None]
  - FOOT DEFORMITY [None]
  - MATERNAL DRUGS AFFECTING FOETUS [None]
  - VISUAL IMPAIRMENT [None]
